FAERS Safety Report 5370376-X (Version None)
Quarter: 2007Q2

REPORT INFORMATION
  Report Type: 
  Country: None (occurrence: None)
  Receive Date: 20070626
  Receipt Date: 20061215
  Transmission Date: 20071010
  Serious: No
  Sender: FDA-Public Use
  Company Number: US-AMGEN-US203754

PATIENT
  Sex: Female
  Weight: 81.7 kg

DRUGS (8)
  1. ARANESP [Suspect]
     Indication: ANAEMIA
     Dates: start: 20060701
  2. PROCRIT [Suspect]
     Dates: start: 20040101, end: 20060101
  3. VITAMIN CAP [Concomitant]
  4. ATENOLOL [Concomitant]
  5. ASPIRIN [Concomitant]
  6. FUROSEMIDE [Concomitant]
  7. ALTACE [Concomitant]
  8. PAXIL [Concomitant]

REACTIONS (1)
  - DRUG INEFFECTIVE [None]
